FAERS Safety Report 12487524 (Version 1)
Quarter: 2016Q2

REPORT INFORMATION
  Report Type: Spontaneous
  Country: RU (occurrence: RU)
  Receive Date: 20160622
  Receipt Date: 20160622
  Transmission Date: 20160815
  Serious: Yes (Other)
  Sender: FDA-Public Use
  Company Number: RU-009507513-1606RUS008758

PATIENT
  Sex: Male

DRUGS (2)
  1. AERIUS [Suspect]
     Active Substance: DESLORATADINE
     Indication: EYE PRURITUS
     Dosage: 0.5 UNK, UNK
     Route: 048
     Dates: start: 20160614, end: 20160615
  2. AERIUS [Suspect]
     Active Substance: DESLORATADINE
     Indication: RHINITIS ALLERGIC
     Dosage: 1 UNK, UNK
     Route: 048
     Dates: start: 20160613, end: 20160613

REACTIONS (5)
  - General physical condition abnormal [Not Recovered/Not Resolved]
  - Prescription drug used without a prescription [Unknown]
  - Depressed level of consciousness [Not Recovered/Not Resolved]
  - Thinking abnormal [Not Recovered/Not Resolved]
  - Somnolence [Not Recovered/Not Resolved]

NARRATIVE: CASE EVENT DATE: 201606
